FAERS Safety Report 13380113 (Version 1)
Quarter: 2017Q1

REPORT INFORMATION
  Report Type: Spontaneous
  Country: US (occurrence: US)
  Receive Date: 20170328
  Receipt Date: 20170328
  Transmission Date: 20170429
  Serious: Yes (Hospitalization)
  Sender: FDA-Public Use
  Company Number: US-ASTRAZENECA-2017SE30979

PATIENT
  Age: 9907 Day
  Sex: Female
  Weight: 56.2 kg

DRUGS (5)
  1. TRINESSA BIRTH CONTROL [Concomitant]
     Indication: POLYCYSTIC OVARIES
     Route: 048
  2. QUETIAPINE. [Suspect]
     Active Substance: QUETIAPINE
     Indication: BORDERLINE PERSONALITY DISORDER
     Dosage: 50.0MG AS REQUIRED
     Route: 048
     Dates: start: 201701
  3. QUETIAPINE. [Suspect]
     Active Substance: QUETIAPINE
     Indication: BORDERLINE PERSONALITY DISORDER
     Route: 048
     Dates: start: 2015, end: 2015
  4. QUETIAPINE. [Suspect]
     Active Substance: QUETIAPINE
     Indication: BORDERLINE PERSONALITY DISORDER
     Route: 048
     Dates: start: 201701
  5. TRINESSA BIRTH CONTROL [Concomitant]
     Indication: CONTRACEPTION
     Route: 048

REACTIONS (11)
  - Major depression [Unknown]
  - Post-traumatic stress disorder [Unknown]
  - Tooth fracture [Unknown]
  - Generalised anxiety disorder [Unknown]
  - Mouth injury [Unknown]
  - Fatigue [Unknown]
  - Drug dependence [Unknown]
  - Tooth injury [Unknown]
  - Somnambulism [Unknown]
  - Fear [Unknown]
  - Insomnia [Unknown]

NARRATIVE: CASE EVENT DATE: 20170312
